FAERS Safety Report 8243245-5 (Version None)
Quarter: 2012Q1

REPORT INFORMATION
  Report Type: 
  Country: None (occurrence: None)
  Receive Date: 20120329
  Receipt Date: 20120327
  Transmission Date: 20120608
  Serious: Yes (Death, Life-Threatening, Hospitalization, Other)
  Sender: FDA-Public Use
  Company Number: DE-B.I. PHARMACEUTICALS,INC./RIDGEFIELD-2012-DE-00370DE

PATIENT
  Sex: Female
  Weight: 75 kg

DRUGS (4)
  1. CLONIDINE [Concomitant]
     Dosage: 4.5 MG
  2. BISOPROLOL FUMARATE [Concomitant]
     Dosage: 2.5 MG
  3. PRADAXA [Suspect]
     Indication: ATRIAL FIBRILLATION
     Dosage: 300 MG
     Route: 048
     Dates: start: 20111111, end: 20120202
  4. PANTOPRAZOLE [Concomitant]
     Dosage: 40 MG

REACTIONS (7)
  - PETECHIAE [None]
  - THROMBOCYTOPENIA [None]
  - ACUTE MYELOID LEUKAEMIA [None]
  - POLYCHROMASIA [None]
  - FULL BLOOD COUNT ABNORMAL [None]
  - MICROCYTOSIS [None]
  - POIKILOCYTOSIS [None]
